FAERS Safety Report 17614150 (Version 1)
Quarter: 2020Q2

REPORT INFORMATION
  Report Type: Spontaneous
  Country: US (occurrence: US)
  Receive Date: 20200402
  Receipt Date: 20200402
  Transmission Date: 20200713
  Serious: No
  Sender: FDA-Public Use
  Company Number: US-AMGEN-USASP2020052712

PATIENT
  Age: 81 Year
  Sex: Male
  Weight: 73.47 kg

DRUGS (1)
  1. NEULASTA [Suspect]
     Active Substance: PEGFILGRASTIM
     Indication: PRODUCT USED FOR UNKNOWN INDICATION
     Dosage: UNK UNK, AFTER CHEMO
     Route: 065
     Dates: start: 20200318

REACTIONS (4)
  - Lethargy [Unknown]
  - Cognitive disorder [Unknown]
  - Asthenia [Unknown]
  - Fatigue [Unknown]

NARRATIVE: CASE EVENT DATE: 20200320
